FAERS Safety Report 5217132-0 (Version None)
Quarter: 2007Q1

REPORT INFORMATION
  Report Type: 
  Country: None (occurrence: None)
  Receive Date: 20070124
  Receipt Date: 20070122
  Transmission Date: 20070707
  Serious: Yes (Death, Hospitalization)
  Sender: FDA-Public Use
  Company Number: FR-GLAXOSMITHKLINE-B0454679A

PATIENT
  Age: 86 Year
  Sex: Male

DRUGS (6)
  1. ARIXTRA [Suspect]
     Dosage: 2.5MG PER DAY
     Route: 058
     Dates: start: 20061225
  2. SYMBICORT [Concomitant]
     Dosage: 2PUFF PER DAY
  3. LASIX [Concomitant]
  4. CORDARONE [Concomitant]
  5. DIGOXIN [Concomitant]
  6. ATACAND [Concomitant]

REACTIONS (5)
  - CONDITION AGGRAVATED [None]
  - GENERAL PHYSICAL HEALTH DETERIORATION [None]
  - HAEMATURIA [None]
  - HAEMORRHAGE [None]
  - OFF LABEL USE [None]
